FAERS Safety Report 13243594 (Version 12)
Quarter: 2019Q2

REPORT INFORMATION
  Report Type: Report from Study
  Country: US (occurrence: US)
  Receive Date: 20170216
  Receipt Date: 20190614
  Transmission Date: 20190711
  Serious: Yes (Hospitalization, Other)
  Sender: FDA-Public Use
  Company Number: US-ACTELION-A-US2015-119150

PATIENT
  Age: 62 Year
  Sex: Female
  Weight: 62.59 kg

DRUGS (7)
  1. VELETRI [Suspect]
     Active Substance: EPOPROSTENOL
     Indication: PULMONARY ARTERIAL HYPERTENSION
     Dosage: 15 NG/KG, PER MIN
     Route: 042
  2. HYDROXYZINE PAM [Concomitant]
     Active Substance: HYDROXYZINE PAMOATE
  3. PREDNISONE. [Concomitant]
     Active Substance: PREDNISONE
  4. OPSUMIT [Suspect]
     Active Substance: MACITENTAN
     Indication: PULMONARY ARTERIAL HYPERTENSION
     Dosage: 10 MG, QD
     Route: 048
     Dates: start: 20150501
  5. PRILOSEC [Concomitant]
     Active Substance: OMEPRAZOLE MAGNESIUM
  6. VELETRI [Suspect]
     Active Substance: EPOPROSTENOL
     Dosage: UNK
     Route: 042
  7. SILDENAFIL CITRATE. [Concomitant]
     Active Substance: SILDENAFIL CITRATE
     Dosage: 20 MG, TID

REACTIONS (30)
  - Influenza [Recovered/Resolved]
  - Suicidal ideation [Unknown]
  - Nasopharyngitis [Unknown]
  - Anxiety [Unknown]
  - Hypoaesthesia [Unknown]
  - Ear pain [Recovered/Resolved]
  - Fatigue [Unknown]
  - Headache [Unknown]
  - Infection [Unknown]
  - Pulmonary congestion [Unknown]
  - Pneumonia [Unknown]
  - Device breakage [Recovered/Resolved]
  - Dyspnoea exertional [Unknown]
  - Diarrhoea [Unknown]
  - Flushing [Unknown]
  - Gastrooesophageal reflux disease [Unknown]
  - Dyspepsia [Unknown]
  - Product dose omission [Unknown]
  - Humerus fracture [Unknown]
  - Palpitations [Unknown]
  - Cough [Unknown]
  - Rhinorrhoea [Recovered/Resolved]
  - Chest pain [Unknown]
  - Nausea [Recovered/Resolved]
  - Oedema peripheral [Recovered/Resolved]
  - Memory impairment [Unknown]
  - Dyspnoea [Unknown]
  - Pyrexia [Recovered/Resolved]
  - Staphylococcus test positive [Recovered/Resolved]
  - Decreased appetite [Unknown]

NARRATIVE: CASE EVENT DATE: 20150507
